FAERS Safety Report 5936753-0 (Version None)
Quarter: 2008Q4

REPORT INFORMATION
  Report Type: 
  Country: None (occurrence: None)
  Receive Date: 20081022
  Receipt Date: 20081014
  Transmission Date: 20090506
  Serious: Yes (Other)
  Sender: FDA-Public Use
  Company Number: THYM-1000737

PATIENT
  Age: 14 Year
  Sex: Female
  Weight: 44 kg

DRUGS (7)
  1. THYMOGLOBULIN [Suspect]
     Indication: RENAL TRANSPLANT
     Dosage: 1.5 MG/KG, QD, INTRAVENOUS
     Route: 042
     Dates: start: 20080104, end: 20080110
  2. THYMOGLOBULIN [Suspect]
     Indication: RENAL TRANSPLANT
     Dosage: 1.5 MG/KG, QD, INTRAVENOUS
     Route: 042
     Dates: start: 20080104, end: 20080110
  3. THYMOGLOBULIN [Suspect]
     Indication: RENAL TRANSPLANT
     Dosage: 1.5 MG/KG, QD, INTRAVENOUS
     Route: 042
     Dates: start: 20080104, end: 20080110
  4. THYMOGLOBULIN [Suspect]
  5. THYMOGLOBULIN [Suspect]
  6. PROGRAF [Concomitant]
  7. MYFORIC (MYCOPHENOLATE SODIUM) [Concomitant]

REACTIONS (2)
  - RENAL GRAFT LOSS [None]
  - RENAL TRANSPLANT [None]
